FAERS Safety Report 16094671 (Version 4)
Quarter: 2022Q1

REPORT INFORMATION
  Report Type: Report from Study
  Country: AU (occurrence: AU)
  Receive Date: 20190320
  Receipt Date: 20220104
  Transmission Date: 20220424
  Serious: Yes (Other)
  Sender: FDA-Public Use
  Company Number: PHHY2018AU033609

PATIENT
  Age: 12 Year
  Sex: Male
  Weight: 73 kg

DRUGS (6)
  1. TRAMETINIB [Suspect]
     Active Substance: TRAMETINIB
     Indication: Astrocytoma
     Dosage: 2 MG, QD
     Route: 048
     Dates: start: 20180826
  2. AVASTIN [Suspect]
     Active Substance: BEVACIZUMAB
     Indication: Optic glioma
     Dosage: UNK
     Route: 065
     Dates: end: 201710
  3. CARBOPLATIN [Suspect]
     Active Substance: CARBOPLATIN
     Indication: Optic glioma
     Dosage: UNK
     Route: 065
     Dates: end: 201711
  4. AMLODIPINE [Concomitant]
     Active Substance: AMLODIPINE BESYLATE
     Indication: Hypertension
     Dosage: 10 MG, QD
     Route: 065
     Dates: start: 20160923
  5. MAGNESIUM OXIDE [Concomitant]
     Active Substance: MAGNESIUM OXIDE
     Indication: Hypomagnesaemia
     Dosage: 2000 MG, QD
     Route: 065
     Dates: start: 20170823
  6. MAGNESIUM OXIDE [Concomitant]
     Active Substance: MAGNESIUM OXIDE
     Dosage: 2000 MG, UNK
     Route: 065
     Dates: start: 20170823

REACTIONS (19)
  - Neoplasm progression [Unknown]
  - Astrocytoma [Unknown]
  - Blood creatine phosphokinase increased [Not Recovered/Not Resolved]
  - Dactylitis [Not Recovered/Not Resolved]
  - Skin infection [Recovered/Resolved]
  - Acne [Recovering/Resolving]
  - Alopecia [Not Recovered/Not Resolved]
  - Rhinorrhoea [Unknown]
  - Proteinuria [Unknown]
  - Eczema infected [Recovering/Resolving]
  - Hair colour changes [Not Recovered/Not Resolved]
  - Epistaxis [Not Recovered/Not Resolved]
  - Cough [Recovered/Resolved]
  - Dry skin [Recovering/Resolving]
  - Pyrexia [Unknown]
  - Diarrhoea [Recovered/Resolved]
  - Hypersensitivity [Unknown]
  - Influenza like illness [Recovered/Resolved]
  - Paronychia [Not Recovered/Not Resolved]

NARRATIVE: CASE EVENT DATE: 20180901
